FAERS Safety Report 8895321 (Version 1)
Quarter: 2012Q4

REPORT INFORMATION
  Report Type: Report from Study
  Country: MX (occurrence: MX)
  Receive Date: 20121107
  Receipt Date: 20121107
  Transmission Date: 20130627
  Serious: Yes (Death, Hospitalization)
  Sender: FDA-Public Use
  Company Number: MX-INCYTE CORPORATION-2012IN002272

PATIENT
  Age: 36 Year
  Sex: Male
  Weight: 50 kg

DRUGS (1)
  1. INC424 [Suspect]
     Indication: MYELOFIBROSIS
     Dosage: 20 mg, bid
     Route: 048
     Dates: start: 20120626, end: 20121010

REACTIONS (5)
  - Brain herniation [Fatal]
  - Intracranial pressure increased [Fatal]
  - Haemorrhagic stroke [Fatal]
  - Renal failure acute [Not Recovered/Not Resolved]
  - Diarrhoea [Not Recovered/Not Resolved]
